FAERS Safety Report 15146637 (Version 1)
Quarter: 2018Q3

REPORT INFORMATION
  Report Type: Spontaneous
  Country: IT (occurrence: IT)
  Receive Date: 20180715
  Receipt Date: 20180715
  Transmission Date: 20181010
  Serious: Yes (Life-Threatening, Other)
  Sender: FDA-Public Use
  Company Number: IT-BRISTOL-MYERS SQUIBB COMPANY-BMS-2018-062265

PATIENT
  Age: 73 Year
  Sex: Female
  Weight: 72 kg

DRUGS (2)
  1. COUMADIN [Suspect]
     Active Substance: WARFARIN SODIUM
     Indication: CARDIAC FIBRILLATION
     Dosage: 5 MG,(DRUG INTERVAL DOSAGE UNIT NUMBER:1 DAY)
     Route: 048
  2. EPCLUSA [Concomitant]
     Active Substance: SOFOSBUVIR\VELPATASVIR
     Indication: HEPATITIS C
     Dosage: 400 MG, UNK
     Route: 048
     Dates: start: 20180531, end: 20180625

REACTIONS (2)
  - Hydrocephalus [Unknown]
  - Ruptured cerebral aneurysm [Unknown]

NARRATIVE: CASE EVENT DATE: 20180625
